FAERS Safety Report 7772965-1 (Version None)
Quarter: 2011Q3

REPORT INFORMATION
  Report Type: 
  Country: None (occurrence: None)
  Receive Date: 20110922
  Receipt Date: 20110106
  Transmission Date: 20111222
  Serious: No
  Sender: FDA-Public Use
  Company Number: US-ASTRAZENECA-2011SE01329

PATIENT
  Sex: Female

DRUGS (8)
  1. SEROQUEL XR [Suspect]
     Route: 048
  2. TRAZODONE HYDROCHLORIDE [Concomitant]
     Indication: SLEEP DISORDER
     Route: 048
  3. SEROQUEL XR [Suspect]
     Route: 048
  4. SEROQUEL XR [Suspect]
     Indication: BIPOLAR I DISORDER
     Route: 048
     Dates: start: 20101201
  5. SEROQUEL XR [Suspect]
     Route: 048
  6. SEROQUEL XR [Suspect]
     Route: 048
  7. SEROQUEL XR [Suspect]
     Route: 048
  8. SEROQUEL XR [Suspect]
     Route: 048

REACTIONS (3)
  - DRY MOUTH [None]
  - FEELING DRUNK [None]
  - SOMNOLENCE [None]
